FAERS Safety Report 21224827 (Version 1)
Quarter: 2022Q3

REPORT INFORMATION
  Report Type: Spontaneous
  Country: US (occurrence: US)
  Receive Date: 20220817
  Receipt Date: 20220817
  Transmission Date: 20221026
  Serious: No
  Sender: FDA-Public Use
  Company Number: US-OTSUKA-2021_028990

PATIENT
  Age: 36 Year
  Sex: Male
  Weight: 68.04 kg

DRUGS (1)
  1. ABILIFY [Suspect]
     Active Substance: ARIPIPRAZOLE
     Indication: Schizophrenia
     Dosage: 50 FATHER UNCERTAIN OF DOSE
     Route: 065
     Dates: start: 2008

REACTIONS (5)
  - Psychiatric decompensation [Unknown]
  - Obsessive thoughts [Unknown]
  - Delusion [Unknown]
  - Refusal of treatment by patient [Unknown]
  - Drug ineffective [Unknown]

NARRATIVE: CASE EVENT DATE: 20210301
